FAERS Safety Report 19802539 (Version 1)
Quarter: 2021Q3

REPORT INFORMATION
  Report Type: Spontaneous
  Country: US (occurrence: US)
  Receive Date: 20210908
  Receipt Date: 20210908
  Transmission Date: 20211014
  Serious: Yes (Disabling)
  Sender: FDA-Public Use
  Company Number: None

PATIENT
  Age: 27 Year
  Sex: Male
  Weight: 81 kg

DRUGS (2)
  1. CHOLESTYRAMINE FOR ORAL SUSPENSION  USP, LIGHT [Suspect]
     Active Substance: CHOLESTYRAMINE
     Indication: EXPOSURE TO FUNGUS
     Route: 048
  2. PREVALITE [Concomitant]
     Active Substance: CHOLESTYRAMINE

REACTIONS (2)
  - Ill-defined disorder [None]
  - Reaction to excipient [None]

NARRATIVE: CASE EVENT DATE: 20210901
